FAERS Safety Report 16932212 (Version 2)
Quarter: 2019Q4

REPORT INFORMATION
  Report Type: Report from Study
  Country: US (occurrence: US)
  Receive Date: 20191017
  Receipt Date: 20191101
  Transmission Date: 20200122
  Serious: Yes (Death, Hospitalization, Other)
  Sender: FDA-Public Use
  Company Number: US-ALLERGAN-1941865US

PATIENT
  Sex: Male

DRUGS (4)
  1. XARELTO [Concomitant]
     Active Substance: RIVAROXABAN
     Indication: THROMBOSIS
     Route: 048
  2. ARICEPT [Concomitant]
     Active Substance: DONEPEZIL HYDROCHLORIDE
     Indication: AMNESIA
     Route: 048
  3. MEMANTINE HCL 28MG CAP (TBD) [Suspect]
     Active Substance: MEMANTINE
     Indication: AMNESIA
     Dosage: 28 MG, QD
     Dates: start: 2013
  4. WARFARIN [Concomitant]
     Active Substance: WARFARIN
     Indication: THROMBOSIS
     Route: 048

REACTIONS (6)
  - Asthenia [Unknown]
  - Fall [Unknown]
  - Eating disorder [Unknown]
  - Weight decreased [Unknown]
  - Cardiac failure congestive [Fatal]
  - Coronary artery disease [Fatal]

NARRATIVE: CASE EVENT DATE: 201901
